FAERS Safety Report 4914623-4 (Version None)
Quarter: 2006Q1

REPORT INFORMATION
  Report Type: 
  Country: None (occurrence: None)
  Receive Date: 20060216
  Receipt Date: 20051114
  Transmission Date: 20060701
  Serious: Yes (Hospitalization)
  Sender: FDA-Public Use
  Company Number: US-MERCK-0511USA02699

PATIENT
  Age: 54 Year
  Sex: Male
  Weight: 100 kg

DRUGS (1)
  1. VIOXX [Suspect]
     Indication: ARTHROPATHY
     Route: 048
     Dates: start: 20010426, end: 20011126

REACTIONS (13)
  - ACUTE CORONARY SYNDROME [None]
  - ACUTE MYOCARDIAL INFARCTION [None]
  - ANGINA PECTORIS [None]
  - BACK DISORDER [None]
  - BRONCHITIS [None]
  - CORONARY ARTERY DISEASE [None]
  - DYSLIPIDAEMIA [None]
  - GLUCOSE TOLERANCE IMPAIRED [None]
  - HERPES ZOSTER [None]
  - HYPERSENSITIVITY [None]
  - NEPHROLITHIASIS [None]
  - SINUS DISORDER [None]
  - SLEEP APNOEA SYNDROME [None]
